FAERS Safety Report 16583427 (Version 1)
Quarter: 2019Q3

REPORT INFORMATION
  Report Type: Spontaneous
  Country: JP (occurrence: JP)
  Receive Date: 20190717
  Receipt Date: 20190717
  Transmission Date: 20191004
  Serious: Yes (Hospitalization, Other)
  Sender: FDA-Public Use
  Company Number: JP-ASTRAZENECA-2019SF01416

PATIENT
  Age: 56 Year
  Sex: Female

DRUGS (1)
  1. IMFINZI [Suspect]
     Active Substance: DURVALUMAB
     Indication: NON-SMALL CELL LUNG CANCER
     Route: 041

REACTIONS (4)
  - Malignant neoplasm progression [Unknown]
  - Pyrexia [Unknown]
  - Interstitial lung disease [Unknown]
  - C-reactive protein increased [Unknown]
